FAERS Safety Report 9166209 (Version 1)
Quarter: 2013Q1

REPORT INFORMATION
  Report Type: Spontaneous
  Country: IT (occurrence: IT)
  Receive Date: 20130315
  Receipt Date: 20130315
  Transmission Date: 20140127
  Serious: Yes (Hospitalization)
  Sender: FDA-Public Use
  Company Number: IT-ASTRAZENECA-2013SE16022

PATIENT
  Age: 82 Year
  Sex: Male

DRUGS (10)
  1. BRILIQUE [Suspect]
     Route: 048
     Dates: start: 20130304, end: 20130305
  2. BRILIQUE [Suspect]
     Route: 048
     Dates: start: 20130305, end: 20130305
  3. PLAVIX [Suspect]
     Route: 048
  4. SIMVASTATIN [Concomitant]
  5. CARDIOASPIRIN [Concomitant]
  6. FUROSEMIDE [Concomitant]
  7. ATENOLOL [Concomitant]
  8. RANITIDINE [Concomitant]
  9. ZYLORIC [Concomitant]
  10. NITRATE (NOS)PATCHES [Concomitant]
     Route: 062

REACTIONS (3)
  - Arthralgia [Not Recovered/Not Resolved]
  - Activities of daily living impaired [Unknown]
  - Rash [Unknown]
